FAERS Safety Report 13137758 (Version 3)
Quarter: 2017Q1

REPORT INFORMATION
  Report Type: Spontaneous
  Country: US (occurrence: US)
  Receive Date: 20170123
  Receipt Date: 20170123
  Transmission Date: 20170428
  Serious: No
  Sender: FDA-Public Use
  Company Number: US-UNITED THERAPEUTICS-UNT-2016-013233

PATIENT
  Age: 81 Year
  Sex: Female
  Weight: 55.33 kg

DRUGS (1)
  1. TYVASO [Suspect]
     Active Substance: TREPROSTINIL
     Indication: PULMONARY HYPERTENSION
     Dosage: 18-54 ?G, QID
     Dates: start: 20160809

REACTIONS (9)
  - Emotional distress [Unknown]
  - Heart rate increased [Unknown]
  - Speech disorder [Unknown]
  - Device issue [Unknown]
  - Gait disturbance [Unknown]
  - Dizziness [Unknown]
  - Asthenia [Unknown]
  - Pain in extremity [Unknown]
  - Dyspnoea [Unknown]

NARRATIVE: CASE EVENT DATE: 201608
